FAERS Safety Report 5425188-5 (Version None)
Quarter: 2007Q3

REPORT INFORMATION
  Report Type: 
  Country: None (occurrence: None)
  Receive Date: 20070824
  Receipt Date: 20070814
  Transmission Date: 20080115
  Serious: Yes (Hospitalization)
  Sender: FDA-Public Use
  Company Number: GB-ROCHE-512601

PATIENT
  Age: 47 Year
  Sex: Female
  Weight: 82.6 kg

DRUGS (2)
  1. XENICAL [Suspect]
     Indication: OBESITY
     Route: 048
     Dates: start: 20070531
  2. GABAPENTIN [Concomitant]
     Indication: BACK PAIN
     Route: 048

REACTIONS (1)
  - PLEURITIC PAIN [None]
